FAERS Safety Report 17375142 (Version 1)
Quarter: 2020Q1

REPORT INFORMATION
  Report Type: Spontaneous
  Country: US (occurrence: US)
  Receive Date: 20200121
  Receipt Date: 20200121
  Transmission Date: 20200409
  Serious: No
  Sender: FDA-Public Use
  Company Number: None

PATIENT
  Age: 94 Year
  Sex: Male
  Weight: 52 kg

DRUGS (2)
  1. CHLORTHALIDONE (CHLORTHIALIDONE 50MG TAB) [Suspect]
     Active Substance: CHLORTHALIDONE
     Indication: HYPERTENSION
     Route: 048
     Dates: start: 20191122, end: 20191127
  2. CHLORTHALIDONE (CHLORTHIALIDONE 50MG TAB) [Suspect]
     Active Substance: CHLORTHALIDONE
     Indication: FLUID RETENTION

REACTIONS (7)
  - Inappropriate antidiuretic hormone secretion [None]
  - Laboratory test abnormal [None]
  - Pruritus [None]
  - Hyponatraemia [None]
  - Pneumonia [None]
  - Chest pain [None]
  - Urticaria [None]

NARRATIVE: CASE EVENT DATE: 20191127
